FAERS Safety Report 7914471-7 (Version None)
Quarter: 2011Q4

REPORT INFORMATION
  Report Type: 
  Country: None (occurrence: None)
  Receive Date: 20111110
  Receipt Date: 20111027
  Transmission Date: 20120403
  Serious: Yes (Hospitalization)
  Sender: FDA-Public Use
  Company Number: 2011P1010031

PATIENT
  Age: 31 Year
  Sex: Female

DRUGS (1)
  1. FENTANYL [Suspect]
     Dosage: 50 MCG;TDER
     Route: 062

REACTIONS (2)
  - WRONG TECHNIQUE IN DRUG USAGE PROCESS [None]
  - MEDICATION ERROR [None]
